FAERS Safety Report 9253918 (Version 1)
Quarter: 2013Q1

REPORT INFORMATION
  Report Type: Spontaneous
  Country: US (occurrence: None)
  Receive Date: 20121203
  Receipt Date: 20121203
  Transmission Date: 20140127
  Serious: Yes (Hospitalization, Other)
  Sender: FDA-Public Use
  Company Number: 2011SP047492

PATIENT
  Age: 25 Year
  Sex: Female
  Weight: 83 kg

DRUGS (1)
  1. NUVARING [Suspect]
     Indication: CONTRACEPTION
     Dates: start: 200710, end: 200910

REACTIONS (8)
  - Deep vein thrombosis [None]
  - Depression [None]
  - Pain in extremity [None]
  - Hypothyroidism [None]
  - Anxiety [None]
  - Pharyngeal disorder [None]
  - Ear disorder [None]
  - Nasal disorder [None]
